FAERS Safety Report 6644831-6 (Version None)
Quarter: 2010Q1

REPORT INFORMATION
  Report Type: 
  Country: None (occurrence: None)
  Receive Date: 20100322
  Receipt Date: 20100316
  Transmission Date: 20100710
  Serious: Yes (Other)
  Sender: FDA-Public Use
  Company Number: US-PFIZER INC-2005016040

PATIENT
  Sex: Female
  Weight: 49 kg

DRUGS (14)
  1. PROVERA [Suspect]
     Indication: HORMONE REPLACEMENT THERAPY
     Dosage: UNK
     Dates: start: 19940527, end: 19960226
  2. PROVERA [Suspect]
     Indication: MENOPAUSE
  3. PREMARIN [Suspect]
     Indication: MENOPAUSE
     Dosage: UNK
  4. PREMARIN [Suspect]
     Indication: HORMONE REPLACEMENT THERAPY
  5. PREMPRO [Suspect]
     Indication: HORMONE REPLACEMENT THERAPY
     Dosage: UNK
     Dates: start: 19960405, end: 19961011
  6. PREMPRO [Suspect]
     Indication: MENOPAUSE
  7. ORTHO-EST [Suspect]
     Indication: HORMONE REPLACEMENT THERAPY
     Dosage: UNK
     Dates: start: 19940527
  8. ORTHO-EST [Suspect]
     Indication: MENOPAUSE
  9. ESTRACE [Suspect]
     Indication: HORMONE REPLACEMENT THERAPY
     Dosage: UNK
     Dates: start: 19940624, end: 19960226
  10. ESTRACE [Suspect]
     Indication: MENOPAUSE
  11. ESTRADERM [Suspect]
     Indication: MENOPAUSE
     Dosage: UNK
     Dates: start: 19950531
  12. CLIMARA [Suspect]
     Indication: MENOPAUSE
     Dosage: UNK
     Dates: start: 19950622
  13. MEDROXYPROGESTERONE ACETATE [Suspect]
     Indication: HORMONE REPLACEMENT THERAPY
     Dosage: UNK
  14. NORLUTATE [Suspect]
     Indication: HORMONE REPLACEMENT THERAPY
     Dosage: UNK

REACTIONS (1)
  - BREAST CANCER FEMALE [None]
